FAERS Safety Report 8003124-5 (Version None)
Quarter: 2011Q4

REPORT INFORMATION
  Report Type: 
  Country: None (occurrence: None)
  Receive Date: 20111222
  Receipt Date: 20111212
  Transmission Date: 20120403
  Serious: Yes (Hospitalization)
  Sender: FDA-Public Use
  Company Number: GXBR2011US005053

PATIENT
  Sex: Male
  Weight: 108 kg

DRUGS (10)
  1. OXYCODONE HCL [Concomitant]
     Dosage: UNK MG, UNK
  2. MYCOPHENOLATE MOFETIL (CELLCEPT) [Concomitant]
     Dosage: UNK DF, UNK
     Dates: start: 19910214
  3. MYCOPHENOLATE MOFETIL [Concomitant]
     Dosage: UNK MG, UNK
  4. LOTENSIN [Suspect]
     Dosage: 40 MG, UNK
  5. CARDURA                                 /JOR/ [Concomitant]
     Dosage: UNK MG, UNK
  6. LOPRESSOR [Concomitant]
     Dosage: UNK MG, UNK
     Dates: start: 19910214
  7. TRAZODONE HCL [Concomitant]
     Dosage: UNK MG, UNK
     Dates: start: 20080101
  8. TACROLIMUS [Suspect]
     Indication: RENAL AND PANCREAS TRANSPLANT
     Dosage: 3 MG, BID
     Dates: start: 20100120
  9. HYDRALAZINE HCL [Concomitant]
     Dosage: UNK DF, UNK
     Dates: start: 20100101
  10. PREDNISONE TAB [Concomitant]
     Dosage: UNK MG, UNK
     Dates: start: 19910214

REACTIONS (8)
  - PLEURAL EFFUSION [None]
  - PANCREATIC CYST [None]
  - FALL [None]
  - HYPOVOLAEMIA [None]
  - BACK DISORDER [None]
  - DIARRHOEA [None]
  - RIB FRACTURE [None]
  - PANCREATITIS [None]
